FAERS Safety Report 25643804 (Version 1)
Quarter: 2025Q3

REPORT INFORMATION
  Report Type: Spontaneous
  Country: US (occurrence: None)
  Receive Date: 20250804
  Receipt Date: 20250804
  Transmission Date: 20251021
  Serious: Yes (Other)
  Sender: FDA-CTU
  Company Number: None

PATIENT
  Age: 56 Year
  Sex: Female
  Weight: 44 kg

DRUGS (7)
  1. CABOTEGRAVIR [Suspect]
     Active Substance: CABOTEGRAVIR
     Indication: Prophylaxis against HIV infection
     Route: 030
     Dates: start: 20250715
  2. ACETAMINOPHEN [Concomitant]
     Active Substance: ACETAMINOPHEN
  3. TIZANIDINE [Concomitant]
     Active Substance: TIZANIDINE
  4. AMLODIPINE [Concomitant]
     Active Substance: AMLODIPINE BESYLATE
  5. OXYBUTYNIN [Concomitant]
     Active Substance: OXYBUTYNIN
  6. HYDROCHLOROTHIAZIDE [Concomitant]
     Active Substance: HYDROCHLOROTHIAZIDE
  7. FENTANYL [Concomitant]
     Active Substance: FENTANYL

REACTIONS (2)
  - Drug withdrawal syndrome [None]
  - Drug-induced liver injury [None]

NARRATIVE: CASE EVENT DATE: 20250728
